FAERS Safety Report 5330558-X (Version None)
Quarter: 2007Q2

REPORT INFORMATION
  Report Type: 
  Country: None (occurrence: None)
  Receive Date: 20070516
  Receipt Date: 20070503
  Transmission Date: 20071010
  Serious: Yes (Other)
  Sender: FDA-Public Use
  Company Number: WAES 0705USA02283

PATIENT

DRUGS (2)
  1. INDOCIN [Suspect]
     Indication: EXTRASKELETAL OSSIFICATION
     Dosage: 100 MG/DAILY, PO
     Route: 048
  2. INDOCIN [Suspect]
     Indication: PROPHYLAXIS
     Dosage: 100 MG/DAILY, PO
     Route: 048

REACTIONS (1)
  - CEREBRAL ISCHAEMIA [None]
